FAERS Safety Report 9784048 (Version 1)
Quarter: 2013Q4

REPORT INFORMATION
  Report Type: Spontaneous
  Country: US (occurrence: US)
  Receive Date: 20131226
  Receipt Date: 20131226
  Transmission Date: 20140711
  Serious: Yes (Hospitalization)
  Sender: FDA-Public Use
  Company Number: US-JNJFOC-20131215000

PATIENT
  Age: 67 Year
  Sex: Female
  Weight: 52 kg

DRUGS (3)
  1. IMBRUVICA [Suspect]
     Indication: MANTLE CELL LYMPHOMA
     Route: 048
     Dates: start: 20131119, end: 2013
  2. LEVOTHYROXINE [Concomitant]
  3. TRAZODONE [Concomitant]

REACTIONS (7)
  - Musculoskeletal disorder [Unknown]
  - Pyrexia [Unknown]
  - Rash [Unknown]
  - Fatigue [Unknown]
  - Asthenia [Unknown]
  - Diarrhoea [Unknown]
  - Gait disturbance [Unknown]
